FAERS Safety Report 12080721 (Version 1)
Quarter: 2016Q1

REPORT INFORMATION
  Report Type: Spontaneous
  Country: AU (occurrence: AU)
  Receive Date: 20160216
  Receipt Date: 20160216
  Transmission Date: 20160526
  Serious: Yes (Other)
  Sender: FDA-Public Use
  Company Number: AU-BRISTOL-MYERS SQUIBB COMPANY-BMS-2006-000049

PATIENT
  Age: 31 Year
  Sex: Female

DRUGS (2)
  1. METFORMIN HYDROCHLORIDE. [Suspect]
     Active Substance: METFORMIN HYDROCHLORIDE
     Indication: OVULATION INDUCTION
     Dosage: 500 MG, TID
     Route: 048
     Dates: start: 200403
  2. CLOMIPHENE [Suspect]
     Active Substance: CLOMIPHENE
     Indication: OVULATION INDUCTION
     Dosage: 5 DAY CYCLES
     Route: 048
     Dates: start: 200308

REACTIONS (2)
  - Pregnancy [Recovered/Resolved]
  - Abortion missed [Unknown]
